FAERS Safety Report 25069104 (Version 1)
Quarter: 2025Q1

REPORT INFORMATION
  Report Type: Spontaneous
  Country: US (occurrence: US)
  Receive Date: 20250312
  Receipt Date: 20250312
  Transmission Date: 20250408
  Serious: No
  Sender: SANOFI AVENTIS
  Company Number: US-SA-2025SA069758

PATIENT
  Age: 22 Year
  Sex: Female

DRUGS (7)
  1. DUPIXENT [Suspect]
     Active Substance: DUPILUMAB
     Indication: Dermatitis atopic
     Dosage: 300 MG, QOW
     Route: 058
     Dates: start: 20220211
  2. RINVOQ [Suspect]
     Active Substance: UPADACITINIB
  3. DOXYCYCLINE [Concomitant]
     Active Substance: DOXYCYCLINE
  4. ELIDEL [Concomitant]
     Active Substance: PIMECROLIMUS
  5. HYDROCORTISONE [Concomitant]
     Active Substance: HYDROCORTISONE
  6. TACROLIMUS [Concomitant]
     Active Substance: TACROLIMUS
  7. MUPIROCIN [Concomitant]
     Active Substance: MUPIROCIN

REACTIONS (2)
  - Acne cystic [Not Recovered/Not Resolved]
  - Pain of skin [Not Recovered/Not Resolved]

NARRATIVE: CASE EVENT DATE: 20250220
